FAERS Safety Report 22160216 (Version 1)
Quarter: 2023Q1

REPORT INFORMATION
  Report Type: Spontaneous
  Country: US (occurrence: None)
  Receive Date: 20230330
  Receipt Date: 20230330
  Transmission Date: 20230417
  Serious: Yes (Hospitalization)
  Sender: FDA-Public Use
  Company Number: None

PATIENT
  Age: 41 Year
  Sex: Female
  Weight: 58.5 kg

DRUGS (4)
  1. OCREVUS [Suspect]
     Active Substance: OCRELIZUMAB
     Indication: Multiple sclerosis
     Route: 042
  2. SOLU-MEDROL [Concomitant]
     Active Substance: METHYLPREDNISOLONE SODIUM SUCCINATE
  3. DIPHENHYDRAMINE [Concomitant]
     Active Substance: DIPHENHYDRAMINE
  4. ACETAMINOPHEN 325MG [Concomitant]

REACTIONS (8)
  - Infusion related reaction [None]
  - Chest discomfort [None]
  - Hypoaesthesia [None]
  - Meningism [None]
  - Neuropathy peripheral [None]
  - Multiple sclerosis relapse [None]
  - Pain in extremity [None]
  - Electric shock sensation [None]

NARRATIVE: CASE EVENT DATE: 20230318
